FAERS Safety Report 8326819-2 (Version None)
Quarter: 2012Q2

REPORT INFORMATION
  Report Type: 
  Country: None (occurrence: None)
  Receive Date: 20120501
  Receipt Date: 20120424
  Transmission Date: 20120825
  Serious: Yes (Other)
  Sender: FDA-Public Use
  Company Number: US-PFIZER INC-2012102275

PATIENT
  Sex: Female
  Weight: 48.98 kg

DRUGS (2)
  1. LATANOPROST [Suspect]
     Indication: GLAUCOMA
     Dosage: 0.5 %, ONE DROP IN EACH EYE AT NIGHT
  2. TIMOLOL [Concomitant]
     Dosage: UNK, IN THE MORNING

REACTIONS (2)
  - CARPAL TUNNEL SYNDROME [None]
  - PERIPHERAL NERVE INJURY [None]
